FAERS Safety Report 22023488 (Version 2)
Quarter: 2023Q1

REPORT INFORMATION
  Report Type: Spontaneous
  Country: US (occurrence: US)
  Receive Date: 20230223
  Receipt Date: 20230225
  Transmission Date: 20230418
  Serious: No
  Sender: FDA-Public Use
  Company Number: US-UNITED THERAPEUTICS-UNT-2023-004065

PATIENT
  Age: 51 Year
  Sex: Male
  Weight: 99.773 kg

DRUGS (5)
  1. REMODULIN [Suspect]
     Active Substance: TREPROSTINIL
     Indication: Pulmonary arterial hypertension
     Dosage: 0.026 ?G/KG, CONTINUING (SELF FILLED CASSETTE WITH 3 ML; PUMP RATE OF 47 MCL PER HOUR)
     Route: 058
  2. REMODULIN [Suspect]
     Active Substance: TREPROSTINIL
     Dosage: UNK, CONTINUING
     Route: 058
     Dates: start: 20221209
  3. REMODULIN [Suspect]
     Active Substance: TREPROSTINIL
     Indication: Pulmonary arterial hypertension
     Dosage: 0.033 ?G/KG, CONTINUING (SELF FILLED REMUNITY; FILL CASSETTE WITH 2.7 ML; AT A RATE OF 30 MCL PER HO
     Route: 058
  4. AMBRISENTAN [Concomitant]
     Active Substance: AMBRISENTAN
     Indication: Product used for unknown indication
     Dosage: UNK
     Route: 065
  5. SILDENAFIL [Concomitant]
     Active Substance: SILDENAFIL
     Indication: Product used for unknown indication
     Dosage: UNK
     Route: 065

REACTIONS (13)
  - Device leakage [Unknown]
  - Device leakage [Unknown]
  - Device leakage [Unknown]
  - Device leakage [Unknown]
  - Device leakage [Unknown]
  - Device leakage [Unknown]
  - Device leakage [Unknown]
  - Device leakage [Unknown]
  - Device leakage [Unknown]
  - Device leakage [Unknown]
  - Stress [Unknown]
  - Malaise [Unknown]
  - Influenza [Unknown]

NARRATIVE: CASE EVENT DATE: 20230216
